FAERS Safety Report 11777155 (Version 1)
Quarter: 2015Q4

REPORT INFORMATION
  Report Type: Spontaneous
  Country: US (occurrence: US)
  Receive Date: 20151125
  Receipt Date: 20151125
  Transmission Date: 20160304
  Serious: No
  Sender: FDA-Public Use
  Company Number: US-PFIZER INC-2015389645

PATIENT
  Age: 73 Year
  Sex: Female
  Weight: 71 kg

DRUGS (10)
  1. LYRICA [Suspect]
     Active Substance: PREGABALIN
     Dosage: 50 MG, 3X/DAY BY MOUTH
     Route: 048
     Dates: start: 2015
  2. LYRICA [Suspect]
     Active Substance: PREGABALIN
     Indication: NEURALGIA
     Dosage: 50 MG, 1X/DAY
  3. BENAZEPRIL [Suspect]
     Active Substance: BENAZEPRIL HYDROCHLORIDE
     Dosage: 40 MG, 1X/DAY TABLET BY MOUTH
     Route: 048
     Dates: start: 20151009
  4. LYRICA [Suspect]
     Active Substance: PREGABALIN
     Dosage: 25 OR 50 MG UNSURE, TAKING AT NIGHT, DAILY
  5. FUROSEMIDE. [Suspect]
     Active Substance: FUROSEMIDE
     Indication: BLOOD PRESSURE ABNORMAL
     Dosage: 40 MG, 1X/DAY
     Route: 048
     Dates: start: 20150716, end: 20151009
  6. SIMVASTATIN. [Concomitant]
     Active Substance: SIMVASTATIN
     Indication: BLOOD CHOLESTEROL ABNORMAL
     Dosage: 10 MG, 1X/DAY
     Route: 048
  7. LYRICA [Suspect]
     Active Substance: PREGABALIN
     Dosage: 25 OR 50 MG UNSURE, THEN TOOK IT IN THE MORNING DAILY
  8. BENAZEPRIL [Suspect]
     Active Substance: BENAZEPRIL HYDROCHLORIDE
     Indication: BLOOD PRESSURE ABNORMAL
     Dosage: 20 MG 1X/DAY
     Route: 048
     Dates: start: 20150716
  9. LYRICA [Suspect]
     Active Substance: PREGABALIN
     Dosage: 25 OR 50 MG UNSURE, 2X/DAY
  10. POTASSIUM [Suspect]
     Active Substance: POTASSIUM
     Indication: BLOOD POTASSIUM ABNORMAL
     Dosage: 10 MEQ, 1X/DAY
     Route: 048
     Dates: start: 20150716

REACTIONS (1)
  - Dry mouth [Recovering/Resolving]
